FAERS Safety Report 13443456 (Version 1)
Quarter: 2017Q2

REPORT INFORMATION
  Report Type: Spontaneous
  Country: US (occurrence: US)
  Receive Date: 20170414
  Receipt Date: 20170414
  Transmission Date: 20170830
  Serious: No
  Sender: FDA-Public Use
  Company Number: US-PIERREL PHARMA S.P.A.-2016PIR00025

PATIENT
  Age: 67 Year
  Weight: 81.63 kg

DRUGS (6)
  1. SIMVASTATIN. [Concomitant]
     Active Substance: SIMVASTATIN
     Dosage: 20 MG, 1X/DAY
  2. ASPIRIN. [Concomitant]
     Active Substance: ASPIRIN
     Dosage: 81 MG, 1X/DAY
  3. ORABLOC [Suspect]
     Active Substance: ARTICAINE HYDROCHLORIDE\EPINEPHRINE BITARTRATE
     Indication: DENTAL CARE
     Dosage: 2 CARPULES
     Route: 004
     Dates: start: 20160606, end: 20160606
  4. LISINOPRIL. [Concomitant]
     Active Substance: LISINOPRIL
     Dosage: 5 MG, 1X/DAY
  5. PEPCID AC [Concomitant]
     Active Substance: FAMOTIDINE
     Dosage: 20 MG, UNK
  6. MULTIVITAMIN [Concomitant]
     Active Substance: VITAMINS

REACTIONS (1)
  - Drug ineffective [Recovered/Resolved]

NARRATIVE: CASE EVENT DATE: 20160606
